FAERS Safety Report 10055583 (Version 4)
Quarter: 2014Q2

REPORT INFORMATION
  Report Type: Report from Study
  Country: EG (occurrence: EG)
  Receive Date: 20140403
  Receipt Date: 20140430
  Transmission Date: 20141212
  Serious: Yes (Other)
  Sender: FDA-Public Use
  Company Number: EG-ROCHE-1303649

PATIENT
  Age: 46 Year
  Sex: Female
  Weight: 85 kg

DRUGS (4)
  1. PEGASYS [Suspect]
     Indication: HEPATITIS C
     Route: 058
     Dates: start: 20131102
  2. COPEGUS [Suspect]
     Indication: HEPATITIS C
     Dosage: FREQUENCY-DAILY
     Route: 048
     Dates: start: 20131102, end: 20140125
  3. COPEGUS [Suspect]
     Dosage: FREQUENCY-DAILY
     Route: 048
     Dates: start: 20140125
  4. NOLVADEX [Concomitant]
     Indication: BREAST NEOPLASM
     Dosage: DAILY
     Route: 048
     Dates: start: 2012

REACTIONS (13)
  - White blood cell count decreased [Unknown]
  - Hyperthermia [Recovered/Resolved]
  - Hyperchlorhydria [Recovering/Resolving]
  - Productive cough [Not Recovered/Not Resolved]
  - Dyspnoea [Recovered/Resolved]
  - Erythema [Not Recovered/Not Resolved]
  - Tremor [Recovering/Resolving]
  - Haemorrhoids [Not Recovered/Not Resolved]
  - Constipation [Not Recovered/Not Resolved]
  - Influenza like illness [Recovered/Resolved]
  - Pyrexia [Recovered/Resolved]
  - Vomiting [Recovered/Resolved]
  - Anaemia [Recovering/Resolving]
